FAERS Safety Report 12482797 (Version 1)
Quarter: 2016Q2

REPORT INFORMATION
  Report Type: Spontaneous
  Country: US (occurrence: US)
  Receive Date: 20160620
  Receipt Date: 20160620
  Transmission Date: 20160815
  Serious: Yes (Disabling, Other)
  Sender: FDA-Public Use
  Company Number: US-SA-2016SA108442

PATIENT
  Age: 37 Year
  Sex: Male

DRUGS (15)
  1. PROPRANOLOL [Concomitant]
     Active Substance: PROPRANOLOL\PROPRANOLOL HYDROCHLORIDE
     Dosage: 10 MG
     Route: 065
  2. VALACICLOVIR [Concomitant]
     Active Substance: VALACYCLOVIR HYDROCHLORIDE
     Dosage: 1 GRAM
     Route: 065
  3. RITUXAN [Concomitant]
     Active Substance: RITUXIMAB
     Route: 065
  4. ZOLPIDEM [Suspect]
     Active Substance: ZOLPIDEM\ZOLPIDEM TARTRATE
     Dosage: 10 MG
     Route: 048
  5. ZOLPIDEM [Suspect]
     Active Substance: ZOLPIDEM\ZOLPIDEM TARTRATE
     Dosage: 5 MG
     Route: 048
  6. HYDROMORPHONE [Concomitant]
     Active Substance: HYDROMORPHONE
     Dosage: 8 MG
     Route: 048
  7. ROZEREM [Concomitant]
     Active Substance: RAMELTEON
     Route: 048
  8. CIPRO [Concomitant]
     Active Substance: CIPROFLOXACIN HYDROCHLORIDE
     Dosage: 500 MG FOR 7 DAYS
     Route: 048
  9. NIMODIPINE. [Concomitant]
     Active Substance: NIMODIPINE
     Dosage: 30 MG CAPSULE, FOR 30 DAYS
     Route: 048
  10. LYRICA [Suspect]
     Active Substance: PREGABALIN
     Dosage: 300 MG CAPSULE
     Route: 048
  11. SONATA [Suspect]
     Active Substance: ZALEPLON
     Dosage: FOR 80 DAYS
     Route: 048
  12. OXYCONTIN [Concomitant]
     Active Substance: OXYCODONE HYDROCHLORIDE
     Dosage: 15 MG
     Route: 048
  13. LINZESS [Concomitant]
     Active Substance: LINACLOTIDE
     Route: 048
  14. DESMOPRESSIN [Concomitant]
     Active Substance: DESMOPRESSIN
     Dosage: 0.1 MG
     Route: 065
  15. NEOMYCIN [Concomitant]
     Active Substance: NEOMYCIN
     Dosage: TABLET
     Route: 065

REACTIONS (26)
  - Cognitive disorder [Unknown]
  - Dyscalculia [Unknown]
  - Respiratory tract congestion [Unknown]
  - Dyspnoea [Unknown]
  - Asthenia [Unknown]
  - Mobility decreased [Unknown]
  - Photophobia [Unknown]
  - Influenza [Unknown]
  - Rheumatoid arthritis [Unknown]
  - Postural orthostatic tachycardia syndrome [Unknown]
  - Hyperacusis [Unknown]
  - Oropharyngeal pain [Unknown]
  - Dizziness [Unknown]
  - Pain [Unknown]
  - Hypotonia [Unknown]
  - Activities of daily living impaired [Unknown]
  - Communication disorder [Unknown]
  - Alanine aminotransferase increased [Unknown]
  - Blood lactate dehydrogenase increased [Unknown]
  - Neuropathy peripheral [Unknown]
  - Insomnia [Unknown]
  - Thought blocking [Unknown]
  - Slow speech [Unknown]
  - Orthostatic hypotension [Unknown]
  - Rash erythematous [Unknown]
  - Language disorder [Unknown]
